FAERS Safety Report 21157714 (Version 1)
Quarter: 2022Q3

REPORT INFORMATION
  Report Type: Spontaneous
  Country: FR (occurrence: FR)
  Receive Date: 20220801
  Receipt Date: 20220801
  Transmission Date: 20221026
  Serious: Yes (Other)
  Sender: FDA-Public Use
  Company Number: None

PATIENT
  Age: 40 Year
  Sex: Female
  Weight: 72 kg

DRUGS (1)
  1. PACLITAXEL [Suspect]
     Active Substance: PACLITAXEL
     Indication: Neoplasm malignant
     Dosage: 145 MG, SINGLE
     Route: 042
     Dates: start: 2022, end: 2022

REACTIONS (5)
  - Hypertension [Unknown]
  - Chest pain [Unknown]
  - Rash [Unknown]
  - Vomiting [Unknown]
  - Oedema [Unknown]

NARRATIVE: CASE EVENT DATE: 20220101
